FAERS Safety Report 15278912 (Version 1)
Quarter: 2018Q3

REPORT INFORMATION
  Report Type: Report from Study
  Country: DE (occurrence: DE)
  Receive Date: 20180815
  Receipt Date: 20180815
  Transmission Date: 20181010
  Serious: Yes (Hospitalization)
  Sender: FDA-Public Use
  Company Number: DE-TEVA-2018-DE-940800

PATIENT
  Age: 59 Year
  Sex: Male

DRUGS (11)
  1. VOLTAREN [Concomitant]
     Active Substance: DICLOFENAC SODIUM
     Dosage: UNK UNK, AS NEEDED
  2. KINERET [Concomitant]
     Active Substance: ANAKINRA
     Dosage: 100 MG, 1X/DAY
     Route: 058
     Dates: start: 201707
  3. ENBREL [Suspect]
     Active Substance: ETANERCEPT
     Dosage: 50 MG, WEEKLY
     Route: 065
     Dates: end: 20170520
  4. COLECALCIFEROL [Concomitant]
     Active Substance: CHOLECALCIFEROL
     Dosage: UNK
  5. ENOXAPARIN SODIUM. [Concomitant]
     Active Substance: ENOXAPARIN SODIUM
     Dosage: UNK
  6. PREDNISOLON [Concomitant]
     Active Substance: PREDNISOLONE
     Dosage: UNK
  7. METHOTREXATE SODIUM. [Suspect]
     Active Substance: METHOTREXATE SODIUM
     Dosage: 10 MG, WEEKLY
     Route: 065
     Dates: end: 201705
  8. PANTOPRAZOL [Concomitant]
     Active Substance: PANTOPRAZOLE SODIUM
     Dosage: UNK
  9. SASP [Concomitant]
     Active Substance: SULFASALAZINE
     Dosage: 1000 MG, DAILY
     Dates: start: 201707
  10. PEPSIN [Concomitant]
     Active Substance: PEPSIN
     Dosage: UNK
  11. FOLSAN [Concomitant]
     Active Substance: FOLIC ACID
     Dosage: UNK

REACTIONS (1)
  - Empyema [Not Recovered/Not Resolved]

NARRATIVE: CASE EVENT DATE: 20170526
